FAERS Safety Report 11701832 (Version 1)
Quarter: 2015Q4

REPORT INFORMATION
  Report Type: Spontaneous
  Country: US (occurrence: US)
  Receive Date: 20151105
  Receipt Date: 20151105
  Transmission Date: 20160304
  Serious: No
  Sender: FDA-Public Use
  Company Number: US-MALLINCKRODT-T201504389

PATIENT
  Age: 53 Year
  Sex: Male
  Weight: 154 kg

DRUGS (19)
  1. LOSARTAN. [Concomitant]
     Active Substance: LOSARTAN
  2. ZOLOFT [Concomitant]
     Active Substance: SERTRALINE HYDROCHLORIDE
  3. LIPITOR [Concomitant]
     Active Substance: ATORVASTATIN CALCIUM
  4. LANTUS [Concomitant]
     Active Substance: INSULIN GLARGINE
  5. OXYBUTYNIN [Concomitant]
     Active Substance: OXYBUTYNIN
  6. ALBUTEROL. [Concomitant]
     Active Substance: ALBUTEROL
  7. PRILOSEC [Concomitant]
     Active Substance: OMEPRAZOLE MAGNESIUM
     Dosage: 40 MG
  8. DULERA [Concomitant]
     Active Substance: FORMOTEROL FUMARATE DIHYDRATE\MOMETASONE FUROATE
  9. PERCOCET [Concomitant]
     Active Substance: ACETAMINOPHEN\OXYCODONE HYDROCHLORIDE
     Indication: BREAKTHROUGH PAIN
  10. HUMALOG [Concomitant]
     Active Substance: INSULIN LISPRO
  11. METOPROLOL [Concomitant]
     Active Substance: METOPROLOL
  12. ARMOUR THYROID [Concomitant]
     Active Substance: THYROID, PORCINE\THYROID, UNSPECIFIED
  13. TIZANIDINE. [Concomitant]
     Active Substance: TIZANIDINE
     Dosage: PRN
  14. GABAPENTIN. [Concomitant]
     Active Substance: GABAPENTIN
  15. FENTANYL TRANSDERMAL SYSTEM [Suspect]
     Active Substance: FENTANYL
     Indication: RHEUMATOID ARTHRITIS
     Dosage: 25 MCG/HR, ONE PATCH EVERY 72 HRS
     Route: 062
     Dates: start: 20150911
  16. KLONOPIN [Concomitant]
     Active Substance: CLONAZEPAM
  17. SULFASALAZINE. [Concomitant]
     Active Substance: SULFASALAZINE
  18. FOLIC ACID. [Concomitant]
     Active Substance: FOLIC ACID
  19. TRAZODONE [Concomitant]
     Active Substance: TRAZODONE HYDROCHLORIDE

REACTIONS (3)
  - Drug effect decreased [Not Recovered/Not Resolved]
  - Product adhesion issue [Not Recovered/Not Resolved]
  - Intentional product misuse [Not Recovered/Not Resolved]

NARRATIVE: CASE EVENT DATE: 20150913
